FAERS Safety Report 8981272 (Version 2)
Quarter: 2013Q1

REPORT INFORMATION
  Report Type: Report from Study
  Country: JP (occurrence: JP)
  Receive Date: 20121221
  Receipt Date: 20130327
  Transmission Date: 20140127
  Serious: Yes (Hospitalization, Other)
  Sender: FDA-Public Use
  Company Number: JP-009507513-1212JPN006915

PATIENT
  Age: 71 Year
  Sex: Female
  Weight: 67 kg

DRUGS (16)
  1. PEGINTRON [Suspect]
     Indication: CHRONIC HEPATITIS C
     Dosage: 100 MICROGRAM, QW
     Route: 058
     Dates: start: 20120903, end: 20121105
  2. PEGINTRON [Suspect]
     Dosage: 100 MICROGRAM, QW
     Route: 058
     Dates: start: 20121119
  3. REBETOL [Suspect]
     Indication: CHRONIC HEPATITIS C
     Dosage: 800 MG, QD
     Route: 048
     Dates: start: 20120903, end: 20120920
  4. REBETOL [Suspect]
     Dosage: 600 MG, QD
     Route: 048
     Dates: start: 20120921, end: 20120923
  5. REBETOL [Suspect]
     Dosage: 400 MG, QD
     Route: 048
     Dates: start: 20120924, end: 20121008
  6. REBETOL [Suspect]
     Dosage: 400MG/2 DAY
     Dates: start: 20121009, end: 20121013
  7. REBETOL [Suspect]
     Dosage: 200MG/2DAY
     Route: 048
     Dates: start: 20121010, end: 20121014
  8. REBETOL [Suspect]
     Dosage: 400MG/2 DAY
     Route: 048
     Dates: start: 20121015, end: 20121020
  9. REBETOL [Suspect]
     Dosage: 600MG/2 DAY
     Route: 048
     Dates: start: 20121016, end: 20121021
  10. REBETOL [Suspect]
     Dosage: 200 MG, QD
     Route: 048
     Dates: start: 20121022, end: 20121029
  11. REBETOL [Suspect]
     Dosage: 200 MG, QD
     Route: 048
     Dates: start: 20121105, end: 20121106
  12. REBETOL [Suspect]
     Dosage: 200 MG/2 DAY
     Route: 048
     Dates: start: 20121210, end: 20121216
  13. REBETOL [Suspect]
     Dosage: 200 MG, UNK
     Route: 048
     Dates: start: 20121217
  14. TELAVIC [Suspect]
     Indication: CHRONIC HEPATITIS C
     Dosage: 1500 MG, QD
     Route: 048
     Dates: start: 20120903, end: 20121029
  15. TALION (BEPOTASTINE BESYLATE) [Concomitant]
     Indication: PROPHYLAXIS
     Dosage: 20 MG, QD
     Route: 048
     Dates: start: 20120903
  16. RIKKUNSHI-TO [Concomitant]
     Indication: PROPHYLAXIS
     Dosage: 7.5 G, QD, FORMULATION:POR
     Route: 048
     Dates: start: 20120903, end: 20121202

REACTIONS (2)
  - Loss of consciousness [Recovering/Resolving]
  - Haemoglobin decreased [Not Recovered/Not Resolved]
